FAERS Safety Report 16949923 (Version 1)
Quarter: 2019Q4

REPORT INFORMATION
  Report Type: Spontaneous
  Country: DK (occurrence: DK)
  Receive Date: 20191023
  Receipt Date: 20191023
  Transmission Date: 20200122
  Serious: Yes (Life-Threatening, Hospitalization)
  Sender: FDA-Public Use
  Company Number: DK-TEVA-2019-DK-1125068

PATIENT
  Age: 52 Year
  Sex: Female

DRUGS (2)
  1. SENDOXAN [Suspect]
     Active Substance: CYCLOPHOSPHAMIDE
     Indication: BREAST CANCER
     Dosage: THE DOSE, FORM OF DRUG AND POTENCY ARE UNKNOWN
     Route: 065
     Dates: start: 20180321, end: 20180504
  2. EPIRUBICIN [Suspect]
     Active Substance: EPIRUBICIN
     Indication: BREAST CANCER
     Dosage: THE DOSE AND POTENCY ARE UNKNOWN
     Route: 065
     Dates: start: 20180321, end: 20180504

REACTIONS (4)
  - Gastrooesophageal reflux disease [Recovered/Resolved]
  - Fatigue [Recovered/Resolved]
  - Hypersomnia [Recovered/Resolved]
  - Febrile neutropenia [Recovered/Resolved]

NARRATIVE: CASE EVENT DATE: 201803
